FAERS Safety Report 17571767 (Version 1)
Quarter: 2020Q1

REPORT INFORMATION
  Report Type: Spontaneous
  Country: BR (occurrence: BR)
  Receive Date: 20200323
  Receipt Date: 20200323
  Transmission Date: 20200409
  Serious: Yes (Other)
  Sender: FDA-Public Use
  Company Number: BR-009507513-2003BRA008205

PATIENT
  Sex: Male
  Weight: 63 kg

DRUGS (4)
  1. JANUVIA [Suspect]
     Active Substance: SITAGLIPTIN PHOSPHATE
     Indication: TYPE 2 DIABETES MELLITUS
     Dosage: 1 TABLET, DAILY
     Route: 048
     Dates: start: 201912
  2. ARA 2 [Concomitant]
     Active Substance: LOSARTAN POTASSIUM
     Indication: HYPERTENSION
     Dosage: 2 TABLETS, DAILY
     Route: 048
     Dates: start: 201903
  3. JANUVIA [Suspect]
     Active Substance: SITAGLIPTIN PHOSPHATE
     Indication: TYPE 2 DIABETES MELLITUS
     Dosage: 1 TABLET, DAILY
     Route: 048
     Dates: start: 2015, end: 2016
  4. GLICLAZIDE [Concomitant]
     Active Substance: GLICLAZIDE
     Indication: TYPE 2 DIABETES MELLITUS
     Dosage: 2 TABLETS, DAILY
     Route: 048
     Dates: start: 201912

REACTIONS (13)
  - Rhinorrhoea [Recovered/Resolved]
  - Gout [Unknown]
  - Blood glucose decreased [Unknown]
  - Blood uric acid increased [Unknown]
  - Blood glucose increased [Unknown]
  - Vascular graft [Unknown]
  - Product label issue [Unknown]
  - Coagulopathy [Unknown]
  - Blood cholesterol increased [Unknown]
  - Diabetes mellitus inadequate control [Unknown]
  - Arterial catheterisation [Unknown]
  - Pneumonia [Recovered/Resolved]
  - Sneezing [Recovered/Resolved]

NARRATIVE: CASE EVENT DATE: 2015
